FAERS Safety Report 18148085 (Version 2)
Quarter: 2020Q3

REPORT INFORMATION
  Report Type: Spontaneous
  Country: DE (occurrence: DE)
  Receive Date: 20200814
  Receipt Date: 20200927
  Transmission Date: 20201103
  Serious: Yes (Death)
  Sender: FDA-Public Use
  Company Number: DE-ROCHE-2585174

PATIENT
  Age: 59 Year
  Sex: Male

DRUGS (2)
  1. AVASTIN [Suspect]
     Active Substance: BEVACIZUMAB
     Indication: HEPATOCELLULAR CARCINOMA
     Dosage: 5 CYCLES SO FAR
     Route: 065
     Dates: start: 20200220
  2. TECENTRIQ [Suspect]
     Active Substance: ATEZOLIZUMAB
     Indication: HEPATOCELLULAR CARCINOMA
     Dosage: 5 CYCLES SO FAR
     Route: 065
     Dates: start: 20200220

REACTIONS (7)
  - Renal failure [Fatal]
  - Cholestasis [Fatal]
  - Intentional product use issue [Unknown]
  - Hepatic failure [Fatal]
  - Encephalopathy [Fatal]
  - Off label use [Unknown]
  - Haemorrhagic cholecystitis [Fatal]

NARRATIVE: CASE EVENT DATE: 20200220
